FAERS Safety Report 6183910-7 (Version None)
Quarter: 2009Q2

REPORT INFORMATION
  Report Type: 
  Country: None (occurrence: None)
  Receive Date: 20090506
  Receipt Date: 20090506
  Transmission Date: 20091009
  Serious: Yes (Hospitalization)
  Sender: FDA-Public Use
  Company Number: None

PATIENT
  Age: 51 Year
  Sex: Female
  Weight: 52 kg

DRUGS (2)
  1. PEGASYS [Suspect]
     Indication: HEPATITIS C
     Dosage: 180MCG WEEKLY SQ
     Route: 058
     Dates: start: 20090206, end: 20090320
  2. RIBAPAK 800 MG QD THREE RIVERS PHARMACEUTIC [Suspect]
     Dosage: 800 MG WEEKLY SQ
     Route: 058
     Dates: start: 20090206, end: 20090320

REACTIONS (2)
  - PNEUMONIA ASPIRATION [None]
  - PULMONARY FIBROSIS [None]
